FAERS Safety Report 5832173-8 (Version None)
Quarter: 2008Q3

REPORT INFORMATION
  Report Type: 
  Country: None (occurrence: None)
  Receive Date: 20080731
  Receipt Date: 20080731
  Transmission Date: 20090109
  Serious: Yes (Life-Threatening, Hospitalization)
  Sender: FDA-Public Use
  Company Number: None

PATIENT
  Age: 24 Year
  Sex: Female
  Weight: 63.5036 kg

DRUGS (2)
  1. YAZ [Suspect]
     Indication: CONTRACEPTION
     Dosage: 1 PILL PER DAY PO
     Route: 048
     Dates: start: 20080215, end: 20080524
  2. YAZ [Suspect]
     Indication: MENSTRUATION IRREGULAR
     Dosage: 1 PILL PER DAY PO
     Route: 048
     Dates: start: 20080215, end: 20080524

REACTIONS (1)
  - PULMONARY EMBOLISM [None]
